FAERS Safety Report 6015650-9 (Version None)
Quarter: 2008Q4

REPORT INFORMATION
  Report Type: 
  Country: None (occurrence: None)
  Receive Date: 20081222
  Receipt Date: 20081121
  Transmission Date: 20090506
  Serious: No
  Sender: FDA-Public Use
  Company Number: US-BAYER-200829484NA

PATIENT
  Age: 27 Year
  Sex: Female
  Weight: 68 kg

DRUGS (2)
  1. MIRENA [Suspect]
     Indication: CONTRACEPTION
     Route: 015
     Dates: start: 20080506, end: 20080725
  2. MIRENA [Suspect]
     Route: 015
     Dates: start: 20080909

REACTIONS (3)
  - DRY EYE [None]
  - VISION BLURRED [None]
  - VISUAL IMPAIRMENT [None]
